FAERS Safety Report 15684758 (Version 1)
Quarter: 2018Q4

REPORT INFORMATION
  Report Type: Spontaneous
  Country: BR (occurrence: BR)
  Receive Date: 20181204
  Receipt Date: 20181204
  Transmission Date: 20190205
  Serious: Yes (Hospitalization)
  Sender: FDA-Public Use
  Company Number: BR-UCBSA-2018053095

PATIENT
  Sex: Male
  Weight: 63 kg

DRUGS (4)
  1. KEPPRA [Suspect]
     Active Substance: LEVETIRACETAM
     Indication: SEIZURE
     Dosage: 750 MG, 2X/DAY (BID)
     Route: 048
     Dates: start: 201809, end: 2018
  2. KEPPRA [Suspect]
     Active Substance: LEVETIRACETAM
     Indication: SEIZURE
     Dosage: 5 ML, 2X/DAY (BID)
     Route: 048
     Dates: start: 201806, end: 201809
  3. KEPPRA [Suspect]
     Active Substance: LEVETIRACETAM
     Dosage: 2 TAB OF 750 MG IN MORNING AND 10ML A NIGHT
     Route: 048
     Dates: start: 201811
  4. KEPPRA [Suspect]
     Active Substance: LEVETIRACETAM
     Dosage: 2 TAB OF 750 MG IN MORNING AND 10ML A NIGHT
     Route: 048
     Dates: start: 201811

REACTIONS (2)
  - Off label use [Unknown]
  - Seizure [Recovered/Resolved]

NARRATIVE: CASE EVENT DATE: 2018
